FAERS Safety Report 4400980-4 (Version None)
Quarter: 2004Q3

REPORT INFORMATION
  Report Type: 
  Country: None (occurrence: None)
  Receive Date: 20040907
  Receipt Date: 20030905
  Transmission Date: 20050211
  Serious: Yes (Other)
  Sender: FDA-Public Use
  Company Number: US-BRISTOL-MYERS SQUIBB COMPANY-12374955

PATIENT
  Age: 68 Year
  Sex: Female

DRUGS (7)
  1. COUMADIN [Suspect]
     Indication: THROMBOSIS PROPHYLAXIS
     Dosage: DOSE: 5 MG ALTERNATED WITH 2.5 MG/DAY. EXPECTED TO RE-START.
     Dates: end: 20030822
  2. LEXAPRO [Suspect]
     Indication: DEPRESSION
     Route: 048
     Dates: start: 20030815, end: 20030822
  3. INSULIN [Concomitant]
     Indication: DIABETES MELLITUS
  4. COLCHICINE [Concomitant]
     Indication: GOUT
  5. PRINIVIL [Concomitant]
     Indication: HYPERTENSION
  6. FUROSEMIDE [Concomitant]
     Indication: HYPERTENSION
  7. RANITIDINE [Concomitant]
     Indication: DYSPEPSIA

REACTIONS (1)
  - INTERNATIONAL NORMALISED RATIO INCREASED [None]
